FAERS Safety Report 5877344-X (Version None)
Quarter: 2008Q3

REPORT INFORMATION
  Report Type: 
  Country: None (occurrence: None)
  Receive Date: 20080908
  Receipt Date: 20080820
  Transmission Date: 20090109
  Serious: Yes (Hospitalization)
  Sender: FDA-Public Use
  Company Number: 2008EU001693

PATIENT
  Sex: Male

DRUGS (2)
  1. PROGRAF [Suspect]
     Indication: RENAL TRANSPLANT
     Dosage: UNKONW/D, ORAL
     Route: 048
     Dates: start: 20071201, end: 20080801
  2. CELLCEPT [Concomitant]

REACTIONS (1)
  - BURKITT'S LEUKAEMIA [None]
